FAERS Safety Report 6806773-2 (Version None)
Quarter: 2010Q2

REPORT INFORMATION
  Report Type: 
  Country: None (occurrence: None)
  Receive Date: 20100629
  Receipt Date: 20080424
  Transmission Date: 20101027
  Serious: No
  Sender: FDA-Public Use
  Company Number: US-PFIZER INC-2008037229

PATIENT
  Sex: Male
  Weight: 99.79 kg

DRUGS (5)
  1. TIKOSYN [Suspect]
     Indication: ATRIAL FIBRILLATION
     Dates: start: 20071201
  2. DILTIAZEM [Suspect]
     Indication: ATRIAL FIBRILLATION
  3. WARFARIN [Concomitant]
  4. ACIPHEX [Concomitant]
  5. MULTI-VITAMINS [Concomitant]

REACTIONS (2)
  - BACK PAIN [None]
  - OSTEOARTHRITIS [None]
